FAERS Safety Report 22331198 (Version 1)
Quarter: 2023Q2

REPORT INFORMATION
  Report Type: Report from Study
  Country: US (occurrence: None)
  Receive Date: 20230517
  Receipt Date: 20230517
  Transmission Date: 20230721
  Serious: Yes (Hospitalization, Other)
  Sender: FDA-Public Use
  Company Number: US-ROCHE-3349599

PATIENT

DRUGS (19)
  1. RITUXIMAB [Suspect]
     Active Substance: RITUXIMAB
     Indication: Marginal zone lymphoma
     Route: 041
     Dates: start: 20150721, end: 20150722
  2. RITUXIMAB [Suspect]
     Active Substance: RITUXIMAB
     Dosage: ON 04/SEP/2015, 25/SEP/2015, 16/OCT/2015, AND 06/NOV/2015 SAME DOSE WAS GIVEN.
     Route: 041
     Dates: start: 20150814, end: 20150814
  3. CYCLOPHOSPHAMIDE [Suspect]
     Active Substance: CYCLOPHOSPHAMIDE
     Indication: Marginal zone lymphoma
     Route: 065
     Dates: start: 20150726, end: 20150726
  4. CYCLOPHOSPHAMIDE [Suspect]
     Active Substance: CYCLOPHOSPHAMIDE
     Dosage: ON 30/SEP/2015 AND 20/OCT/2015 SAME DOSE WAS GIVEN.
     Route: 065
     Dates: start: 20150818, end: 20150818
  5. CYCLOPHOSPHAMIDE [Suspect]
     Active Substance: CYCLOPHOSPHAMIDE
     Route: 065
     Dates: start: 20151111, end: 20151111
  6. DOXORUBICIN [Suspect]
     Active Substance: DOXORUBICIN
     Indication: Marginal zone lymphoma
     Route: 065
     Dates: start: 20150722, end: 20150725
  7. DOXORUBICIN [Suspect]
     Active Substance: DOXORUBICIN
     Dosage: ON 25/SEP/2015, 16/OCT/2015 AND 6/NOV/2015 SAME DOSE WAS GIVEN.
     Route: 065
     Dates: start: 20150814, end: 20150818
  8. DOXORUBICIN [Suspect]
     Active Substance: DOXORUBICIN
     Route: 065
     Dates: start: 20150904, end: 20150907
  9. ETOPOSIDE [Suspect]
     Active Substance: ETOPOSIDE
     Indication: Marginal zone lymphoma
     Route: 065
     Dates: start: 20150722, end: 20150725
  10. ETOPOSIDE [Suspect]
     Active Substance: ETOPOSIDE
     Route: 065
     Dates: start: 20150814, end: 20150818
  11. ETOPOSIDE [Suspect]
     Active Substance: ETOPOSIDE
     Dosage: ON 25/SEP/2015, 16/OCT/2015 AND 6/NOV/2015 SAME DOSE WAS GIVEN.
     Route: 065
     Dates: start: 20150904, end: 20150907
  12. FILGRASTIM [Suspect]
     Active Substance: FILGRASTIM
     Indication: Marginal zone lymphoma
     Dosage: 480 MCG
     Route: 065
     Dates: start: 20150819, end: 20150819
  13. METHOTREXATE [Suspect]
     Active Substance: METHOTREXATE
     Indication: Marginal zone lymphoma
     Dosage: ON 04/SEP/2015, 25/SEP/2015, 29SEP/2015, 16/OCT/2015, 20/OCT/2015, 6/NOV/2015, AND 10/NOV/2015 SAME
     Route: 065
     Dates: start: 20150908, end: 20150908
  14. PEGFILGRASTIM [Suspect]
     Active Substance: PEGFILGRASTIM
     Indication: Marginal zone lymphoma
     Dosage: ON 22/AUG/2015, 10/SEP/2015, 01/OCT/2015, 22/OCT/2015, AND 12/NOV/2015 SAME DOSE WAS GIVEN.
     Route: 065
     Dates: start: 20150801, end: 20150801
  15. PREDNISONE [Suspect]
     Active Substance: PREDNISONE
     Indication: Marginal zone lymphoma
     Route: 065
     Dates: start: 20150721, end: 20150725
  16. PREDNISONE [Suspect]
     Active Substance: PREDNISONE
     Dosage: ON 04/SEP/2015, 25/SEP/2015, 16/OCT/2015, AND 06/NOV/2015 SAME DOSE WAS GIVEN.
     Route: 065
     Dates: start: 20150814, end: 20150818
  17. VINCRISTINE [Suspect]
     Active Substance: VINCRISTINE
     Indication: Marginal zone lymphoma
     Route: 065
     Dates: start: 20150722, end: 20150725
  18. VINCRISTINE [Suspect]
     Active Substance: VINCRISTINE
     Route: 065
     Dates: start: 20150814, end: 20150818
  19. VINCRISTINE [Suspect]
     Active Substance: VINCRISTINE
     Dosage: ON 25/SEP/2015, 16/OCT/2015, AND 06/NOV/2015 SAME DOSE WAS GIVEN.
     Route: 065
     Dates: start: 20150904, end: 20150907

REACTIONS (8)
  - Hypoxia [Recovered/Resolved]
  - Infusion related reaction [Recovered/Resolved]
  - Asthenia [Not Recovered/Not Resolved]
  - Oesophagitis [Not Recovered/Not Resolved]
  - Oropharyngeal pain [Not Recovered/Not Resolved]
  - Febrile neutropenia [Recovered/Resolved]
  - Platelet count decreased [Recovered/Resolved]
  - Fatigue [Not Recovered/Not Resolved]

NARRATIVE: CASE EVENT DATE: 20150721
